FAERS Safety Report 7901629 (Version 6)
Quarter: 2014Q1

REPORT INFORMATION
  Report Type: Spontaneous
  Country: US (occurrence: US)
  Receive Date: 20110415
  Receipt Date: 20140319
  Transmission Date: 20141002
  Serious: Yes (Hospitalization)
  Sender: FDA-Public Use
  Company Number: US-B.I. PHARMACEUTICALS,INC./RIDGEFIELD-2011-BP-05800BP

PATIENT
  Age: 80 Year
  Sex: Male
  Weight: 88.45 kg

DRUGS (16)
  1. PRADAXA [Suspect]
     Indication: ATRIAL FIBRILLATION
     Dosage: 300 MG
     Route: 048
     Dates: start: 20101121, end: 20110326
  2. PRADAXA [Suspect]
     Indication: ANTICOAGULANT THERAPY
     Dosage: 300 MG
     Route: 065
     Dates: start: 20110404, end: 20110617
  3. WARFARIN [Concomitant]
     Route: 048
     Dates: start: 2003, end: 201307
  4. ZETA [Concomitant]
     Route: 065
     Dates: start: 2003, end: 201307
  5. ZOLPEDEME TARTRATE [Concomitant]
     Route: 065
     Dates: start: 2003, end: 201307
  6. COREG CR [Concomitant]
     Route: 065
     Dates: start: 200703, end: 201307
  7. FUROSEMIDE [Concomitant]
     Route: 065
     Dates: start: 2003, end: 201307
  8. RAMIPRIL [Concomitant]
     Route: 065
     Dates: start: 2003
  9. FLUTICASONE [Concomitant]
     Route: 065
  10. LORAZEPAM [Concomitant]
     Route: 065
  11. OCCUVITE [Concomitant]
     Route: 065
  12. FISH OIL [Concomitant]
     Route: 065
  13. GARLIC [Concomitant]
     Route: 065
  14. VITAMIN C [Concomitant]
     Route: 065
  15. FOLIC ACID [Concomitant]
     Route: 065
  16. MULTI VITAMIN [Concomitant]
     Route: 065

REACTIONS (10)
  - Rectal haemorrhage [Recovered/Resolved]
  - Peripheral coldness [Not Recovered/Not Resolved]
  - Peripheral coldness [Not Recovered/Not Resolved]
  - Nasal inflammation [Not Recovered/Not Resolved]
  - Constipation [Not Recovered/Not Resolved]
  - Rectal haemorrhage [Recovered/Resolved]
  - Rectal haemorrhage [Recovered/Resolved]
  - Haemorrhage [Unknown]
  - Gastrointestinal haemorrhage [Unknown]
  - Haematochezia [Unknown]
